FAERS Safety Report 10042380 (Version 1)
Quarter: 2014Q1

REPORT INFORMATION
  Report Type: Spontaneous
  Country: US (occurrence: US)
  Receive Date: 20140327
  Receipt Date: 20140327
  Transmission Date: 20141002
  Serious: Yes (Other)
  Sender: FDA-Public Use
  Company Number: US-BAYER-2014-042571

PATIENT
  Sex: 0

DRUGS (2)
  1. BAYER ASPIRIN REGIMEN ADULT LOW STRENGTH [Suspect]
  2. CELEBREX [Interacting]

REACTIONS (2)
  - Upper gastrointestinal haemorrhage [None]
  - Labelled drug-drug interaction medication error [None]
